FAERS Safety Report 25794863 (Version 1)
Quarter: 2025Q3

REPORT INFORMATION
  Report Type: Spontaneous
  Country: EU (occurrence: EU)
  Receive Date: 20250912
  Receipt Date: 20250912
  Transmission Date: 20251020
  Serious: Yes (Death, Life-Threatening, Hospitalization)
  Sender: ACCORD
  Company Number: EU-Accord-504109

PATIENT
  Age: 57 Year
  Sex: Male

DRUGS (11)
  1. FLUOROURACIL [Suspect]
     Active Substance: FLUOROURACIL
     Indication: Neoplasm progression
  2. SITAGLIPTIN [Concomitant]
     Active Substance: SITAGLIPTIN
  3. METAMIZOLE [Concomitant]
     Active Substance: METAMIZOLE
  4. TRASTUZUMAB [Concomitant]
     Active Substance: TRASTUZUMAB
     Indication: Neoplasm progression
  5. PANTOPRAZOLE [Concomitant]
     Active Substance: PANTOPRAZOLE
  6. FLUOROURACIL [Suspect]
     Active Substance: FLUOROURACIL
     Indication: Metastases to lymph nodes
  7. FLUOROURACIL [Suspect]
     Active Substance: FLUOROURACIL
     Indication: Metastases to lung
  8. FLUOROURACIL [Suspect]
     Active Substance: FLUOROURACIL
     Indication: Metastases to adrenals
  9. TRASTUZUMAB [Concomitant]
     Active Substance: TRASTUZUMAB
     Indication: Metastases to lymph nodes
  10. TRASTUZUMAB [Concomitant]
     Active Substance: TRASTUZUMAB
     Indication: Metastases to lung
  11. TRASTUZUMAB [Concomitant]
     Active Substance: TRASTUZUMAB
     Indication: Metastases to adrenals

REACTIONS (8)
  - Arteriospasm coronary [Fatal]
  - Cardiogenic shock [Fatal]
  - Ventricular hypokinesia [Fatal]
  - Ejection fraction decreased [Fatal]
  - Brain injury [Fatal]
  - Brain injury [Fatal]
  - Ventricular fibrillation [Recovered/Resolved]
  - Off label use [Unknown]
